FAERS Safety Report 6727427-7 (Version None)
Quarter: 2010Q2

REPORT INFORMATION
  Report Type: 
  Country: None (occurrence: None)
  Receive Date: 20100517
  Receipt Date: 20100322
  Transmission Date: 20101027
  Serious: No
  Sender: FDA-Public Use
  Company Number: A0845477A

PATIENT
  Age: 42 Year
  Sex: Male
  Weight: 91.7 kg

DRUGS (8)
  1. VOTRIENT [Suspect]
     Dosage: 800MG PER DAY
     Route: 048
     Dates: start: 20100201
  2. LISINOPRIL [Concomitant]
     Indication: HYPERTENSION
     Dosage: 10MG PER DAY
     Route: 048
  3. LIPITOR [Concomitant]
  4. NORVASC [Concomitant]
  5. FERROUS SULFATE TAB [Concomitant]
  6. LIPITOR [Concomitant]
     Dosage: 40MG PER DAY
     Route: 048
  7. NORVASC [Concomitant]
     Indication: HYPERTENSION
     Dosage: 10MG PER DAY
     Route: 048
  8. FERROUS SULFATE TAB [Concomitant]
     Dosage: 325MG PER DAY
     Route: 048

REACTIONS (5)
  - ABDOMINAL PAIN UPPER [None]
  - CYST [None]
  - MASS [None]
  - RENAL DISORDER [None]
  - VOMITING [None]
